FAERS Safety Report 10101242 (Version 1)
Quarter: 2014Q2

REPORT INFORMATION
  Report Type: Spontaneous
  Country: GB (occurrence: GB)
  Receive Date: 20140424
  Receipt Date: 20140424
  Transmission Date: 20141212
  Serious: Yes (Other)
  Sender: FDA-Public Use
  Company Number: GB-BAYER-2014-054866

PATIENT
  Age: 74 Year
  Sex: Male

DRUGS (2)
  1. ULTRAVIST 370 [Suspect]
     Indication: COMPUTERISED TOMOGRAM
     Dosage: 75 ML, ONCE
  2. ULTRAVIST 370 [Suspect]
     Indication: SCAN WITH CONTRAST

REACTIONS (1)
  - Sialoadenitis [Recovered/Resolved]
